FAERS Safety Report 6137456-2 (Version None)
Quarter: 2009Q1

REPORT INFORMATION
  Report Type: 
  Country: None (occurrence: None)
  Receive Date: 20090326
  Receipt Date: 20090316
  Transmission Date: 20090719
  Serious: Yes (Other)
  Sender: FDA-Public Use
  Company Number: GXKR2009CN03358

PATIENT
  Age: 11 Year
  Sex: Male
  Weight: 55 kg

DRUGS (4)
  1. ISONIAZID [Suspect]
     Indication: TUBERCULOSIS
     Dosage: 300 MG, DAILY
  2. RIFAMPICIN [Suspect]
     Indication: LYMPHADENITIS
     Dosage: 600 MG, DAILY
  3. ETHAMBUTOL HYDROCHLORIDE [Suspect]
     Indication: LYMPHADENITIS
     Dosage: 800 MG, DAILY
  4. PYRAZINAMIDE [Suspect]
     Indication: TUBERCULOSIS
     Dosage: 2 G, DAILY

REACTIONS (4)
  - LYMPHADENITIS [None]
  - LYMPHADENOPATHY [None]
  - PURULENCE [None]
  - ULCER [None]
